FAERS Safety Report 9523629 (Version 2)
Quarter: 2013Q4

REPORT INFORMATION
  Report Type: Spontaneous
  Country: US (occurrence: US)
  Receive Date: 20130913
  Receipt Date: 20131220
  Transmission Date: 20140711
  Serious: Yes (Other)
  Sender: FDA-Public Use
  Company Number: US-PFIZER INC-2013264191

PATIENT
  Age: 59 Year
  Sex: Male
  Weight: 97.51 kg

DRUGS (2)
  1. LYRICA [Suspect]
     Dosage: 75 MG, UNK
  2. PROTONIX [Suspect]
     Dosage: UNK

REACTIONS (2)
  - Gastric perforation [Unknown]
  - Arterial disorder [Unknown]
